FAERS Safety Report 6613968 (Version 2)
Quarter: 2024Q1

REPORT INFORMATION
  Report Type: Spontaneous
  Country: FR (occurrence: FR)
  Receive Date: 20080414
  Receipt Date: 20240322
  Transmission Date: 20240410
  Serious: Yes (Hospitalization, Other)
  Sender: FDA-Public Use
  Company Number: FR-AVENTIS-200811175FR

PATIENT
  Age: 72 Year
  Sex: Female

DRUGS (25)
  1. ACETAMINOPHEN\CAFFEINE\PROPOXYPHENE [Suspect]
     Active Substance: ACETAMINOPHEN\CAFFEINE\PROPOXYPHENE
     Indication: Sciatica
     Dosage: 3 DF, QD
     Route: 048
     Dates: start: 20080229, end: 20080303
  2. LOVENOX [Suspect]
     Active Substance: ENOXAPARIN SODIUM
     Indication: Thrombosis prophylaxis
     Dosage: UNK
     Route: 058
     Dates: start: 20080228, end: 20080306
  3. PRIMPERAN [Suspect]
     Active Substance: METOCLOPRAMIDE HYDROCHLORIDE
     Indication: Nausea
     Dosage: UNK
     Route: 048
     Dates: start: 20080229, end: 20080303
  4. PREGABALIN [Suspect]
     Active Substance: PREGABALIN
     Indication: Sciatica
     Dosage: 150 MG, QD
     Route: 048
     Dates: start: 20080221, end: 20080227
  5. PREGABALIN [Suspect]
     Active Substance: PREGABALIN
     Dosage: UNK UNK, QD
     Route: 048
     Dates: start: 20080228, end: 20080228
  6. PREGABALIN [Suspect]
     Active Substance: PREGABALIN
     Dosage: UNK, QD
     Route: 048
     Dates: start: 20080229, end: 20080301
  7. GABAPENTIN [Suspect]
     Active Substance: GABAPENTIN
     Indication: Product used for unknown indication
     Dosage: UNK UNK,QD
     Route: 048
     Dates: start: 20080301, end: 20080301
  8. GABAPENTIN [Suspect]
     Active Substance: GABAPENTIN
     Indication: Pain in extremity
     Dosage: 120 MG, QD
     Route: 048
     Dates: start: 20080302, end: 20080303
  9. KETOPROFEN [Concomitant]
     Active Substance: KETOPROFEN
     Indication: Sciatica
     Dosage: 100 MG, QD
     Route: 048
     Dates: start: 20080221, end: 20080227
  10. TRAMADOL HYDROCHLORIDE [Concomitant]
     Active Substance: TRAMADOL HYDROCHLORIDE
     Indication: Sciatica
     Dosage: 100 MG, QD
     Route: 048
     Dates: start: 20080228, end: 20080229
  11. KETOPROFEN [Concomitant]
     Active Substance: KETOPROFEN
     Indication: Sciatica
     Dosage: 100 MG, QD
     Route: 048
     Dates: start: 20080228, end: 20080306
  12. EZETIMIBE [Concomitant]
     Active Substance: EZETIMIBE
     Indication: Product used for unknown indication
     Dosage: 10 MG
     Route: 048
     Dates: end: 20080306
  13. LORAZEPAM [Concomitant]
     Active Substance: LORAZEPAM
     Indication: Product used for unknown indication
     Dosage: UNK
     Route: 048
  14. ALTHIAZIDE\SPIRONOLACTONE [Concomitant]
     Active Substance: ALTHIAZIDE\SPIRONOLACTONE
     Indication: Product used for unknown indication
     Dosage: 40 MG
     Route: 048
  15. ONDANSETRON [Concomitant]
     Active Substance: ONDANSETRON
     Indication: Nausea
     Dosage: UNK
     Dates: start: 20080229, end: 200803
  16. POLYETHYLENE GLYCOL 4000 [Concomitant]
     Active Substance: POLYETHYLENE GLYCOL 4000
     Indication: Constipation
     Dosage: UNK
     Route: 048
     Dates: start: 20080229, end: 200803
  17. FENTANYL [Concomitant]
     Active Substance: FENTANYL\FENTANYL CITRATE
     Indication: Cancer pain
     Dosage: 25 UG, QD
     Dates: start: 20080302, end: 20080302
  18. FENTANYL [Concomitant]
     Active Substance: FENTANYL\FENTANYL CITRATE
     Dosage: 50 UG, QD
     Dates: start: 20080303, end: 20080303
  19. FENTANYL [Concomitant]
     Active Substance: FENTANYL\FENTANYL CITRATE
     Dosage: 75 UG, QD
     Dates: start: 20080304, end: 20080305
  20. NARCAN [Concomitant]
     Active Substance: NALOXONE HYDROCHLORIDE
     Indication: Product used for unknown indication
     Dosage: UNK
     Route: 042
     Dates: start: 20080305, end: 200803
  21. SOLU-MEDROL [Concomitant]
     Active Substance: METHYLPREDNISOLONE SODIUM SUCCINATE
     Indication: Product used for unknown indication
     Dosage: UNK
     Dates: start: 20080305, end: 20080306
  22. AMOXICILLIN\CLAVULANATE POTASSIUM [Concomitant]
     Active Substance: AMOXICILLIN\CLAVULANATE POTASSIUM
     Indication: Product used for unknown indication
     Dosage: UNK
     Dates: start: 20080305, end: 20080306
  23. OXYCODONE [Concomitant]
     Active Substance: OXYCODONE\OXYCODONE HYDROCHLORIDE
     Indication: Sciatica
     Dosage: UNK
     Dates: start: 20080306
  24. OXYCODONE [Concomitant]
     Active Substance: OXYCODONE\OXYCODONE HYDROCHLORIDE
     Indication: Pain in extremity
  25. ESOMEPRAZOLE MAGNESIUM [Concomitant]
     Active Substance: ESOMEPRAZOLE\ESOMEPRAZOLE MAGNESIUM\ESOMEPRAZOLE MAGNESIUM DIHYDRATE
     Indication: Sciatica
     Dosage: UNK
     Route: 048
     Dates: start: 20080306, end: 20080306

REACTIONS (5)
  - Hepatic cytolysis [Recovering/Resolving]
  - Alanine aminotransferase increased [Recovering/Resolving]
  - Aspartate aminotransferase increased [Recovering/Resolving]
  - Gamma-glutamyltransferase increased [Recovering/Resolving]
  - Hepatocellular injury [Recovering/Resolving]

NARRATIVE: CASE EVENT DATE: 20080306
